FAERS Safety Report 8011898-2 (Version None)
Quarter: 2011Q4

REPORT INFORMATION
  Report Type: 
  Country: None (occurrence: None)
  Receive Date: 20111228
  Receipt Date: 20111219
  Transmission Date: 20120403
  Serious: Yes (Death)
  Sender: FDA-Public Use
  Company Number: US-PFIZER INC-2011309715

PATIENT
  Age: 38 Year
  Sex: Male

DRUGS (6)
  1. DIAZEPAM [Suspect]
  2. ACETAMINOPHEN AND HYDROCODONE BITARTRATE [Suspect]
  3. ETHANOL [Suspect]
  4. COCAINE [Suspect]
  5. MORPHINE SULFATE [Suspect]
  6. TRAMADOL HCL [Suspect]

REACTIONS (3)
  - COMPLETED SUICIDE [None]
  - RESPIRATORY ARREST [None]
  - CARDIAC ARREST [None]
